FAERS Safety Report 22090878 (Version 1)
Quarter: 2023Q1

REPORT INFORMATION
  Report Type: Spontaneous
  Country: US (occurrence: None)
  Receive Date: 20230314
  Receipt Date: 20230314
  Transmission Date: 20230418
  Serious: Yes (Other)
  Sender: FDA-Public Use
  Company Number: 2023A055572

PATIENT
  Sex: Female

DRUGS (1)
  1. BUDESONIDE\FORMOTEROL\GLYCOPYRRONIUM [Suspect]
     Active Substance: BUDESONIDE\FORMOTEROL\GLYCOPYRRONIUM
     Indication: Chronic obstructive pulmonary disease
     Dosage: 2 PUFFS, BID320UG/INHAL TWO TIMES A DAY
     Route: 055

REACTIONS (5)
  - Visual impairment [Unknown]
  - Deafness [Unknown]
  - Eye disorder [Unknown]
  - Drug ineffective [Unknown]
  - Device defective [Unknown]
